FAERS Safety Report 9159976 (Version 1)
Quarter: 2013Q1

REPORT INFORMATION
  Report Type: Spontaneous
  Country: JP (occurrence: JP)
  Receive Date: 20130313
  Receipt Date: 20130313
  Transmission Date: 20140127
  Serious: Yes (Other)
  Sender: FDA-Public Use
  Company Number: JP-SANOFI-AVENTIS-2012SA091852

PATIENT
  Age: 20 Year
  Sex: Female
  Weight: 75 kg

DRUGS (2)
  1. LANTUS [Suspect]
     Indication: TYPE 1 DIABETES MELLITUS
     Dosage: 33 UNITS/DAY (7-13-13) DOSE:33 UNIT(S)
     Route: 058
  2. NOVORAPID [Suspect]
     Indication: TYPE 1 DIABETES MELLITUS
     Dosage: DOSE:15 UNIT(S)
     Route: 058

REACTIONS (2)
  - Hypoglycaemic unconsciousness [Recovered/Resolved]
  - Road traffic accident [Unknown]
